FAERS Safety Report 15886172 (Version 2)
Quarter: 2019Q4

REPORT INFORMATION
  Report Type: Spontaneous
  Country: FR (occurrence: FR)
  Receive Date: 20190129
  Receipt Date: 20191025
  Transmission Date: 20200122
  Serious: Yes (Hospitalization, Other)
  Sender: FDA-Public Use
  Company Number: FR-PFIZER INC-2019035051

PATIENT
  Age: 70 Year
  Sex: Male
  Weight: 87 kg

DRUGS (1)
  1. TAZOCILLINE [Suspect]
     Active Substance: PIPERACILLIN SODIUM\TAZOBACTAM SODIUM
     Indication: DEVICE RELATED INFECTION
     Dosage: 12 G, 1X/DAY
     Route: 042
     Dates: start: 20181213, end: 20181216

REACTIONS (2)
  - Cholestasis [Not Recovered/Not Resolved]
  - Cell death [Not Recovered/Not Resolved]

NARRATIVE: CASE EVENT DATE: 20181216
